FAERS Safety Report 25673200 (Version 4)
Quarter: 2025Q4

REPORT INFORMATION
  Report Type: Report from Study
  Country: US (occurrence: US)
  Receive Date: 20250813
  Receipt Date: 20251110
  Transmission Date: 20260117
  Serious: Yes (Other)
  Sender: TAKEDA
  Company Number: US-TAKEDA-2025TUS022738

PATIENT
  Age: 78 Year
  Sex: Female
  Weight: 65 kg

DRUGS (3)
  1. .ALPHA.1-PROTEINASE INHIBITOR HUMAN [Interacting]
     Active Substance: .ALPHA.1-PROTEINASE INHIBITOR HUMAN
     Indication: Alpha-1 antitrypsin deficiency
     Dosage: 60 MILLIGRAM/KILOGRAM, 1/WEEK
     Dates: start: 20250206
  2. .ALPHA.1-PROTEINASE INHIBITOR HUMAN [Interacting]
     Active Substance: .ALPHA.1-PROTEINASE INHIBITOR HUMAN
  3. TRELEGY ELLIPTA [Interacting]
     Active Substance: FLUTICASONE FUROATE\UMECLIDINIUM BROMIDE\VILANTEROL TRIFENATATE
     Indication: Product used for unknown indication
     Dosage: UNK

REACTIONS (15)
  - Loss of consciousness [Unknown]
  - Concussion [Recovering/Resolving]
  - Fall [Recovering/Resolving]
  - Contusion [Recovering/Resolving]
  - Wound [Recovering/Resolving]
  - Blood sodium decreased [Unknown]
  - Drug interaction [Unknown]
  - Sputum increased [Unknown]
  - Dacryocanaliculitis [Recovering/Resolving]
  - Dacryostenosis acquired [Unknown]
  - Dizziness [Unknown]
  - Dyspnoea [Unknown]
  - Cough [Unknown]
  - Tremor [Unknown]
  - Catheter site pain [Unknown]
